FAERS Safety Report 24732428 (Version 1)
Quarter: 2024Q4

REPORT INFORMATION
  Report Type: Spontaneous
  Country: JP (occurrence: JP)
  Receive Date: 20241213
  Receipt Date: 20241213
  Transmission Date: 20250115
  Serious: Yes (Hospitalization)
  Sender: BAYER HEALTHCARE PHARMACEUTICALS INC.
  Company Number: JP-BAYER-2024A176764

PATIENT
  Age: 71 Year
  Sex: Male
  Weight: 59.9 kg

DRUGS (10)
  1. STIVARGA [Suspect]
     Active Substance: REGORAFENIB MONOHYDRATE
     Indication: Gastrointestinal stromal tumour
     Dosage: DAILY DOSE 80 MG
     Route: 048
     Dates: start: 20240618, end: 20240623
  2. MIYA-BM [Concomitant]
     Active Substance: CLOSTRIDIUM BUTYRICUM SPORES STRAIN M-55
     Route: 065
  3. LANSOPRAZOLE [Concomitant]
     Active Substance: LANSOPRAZOLE
     Route: 065
  4. LACTULOSE [Concomitant]
     Active Substance: LACTULOSE
     Route: 065
  5. MAGNESIUM OXIDE [Concomitant]
     Active Substance: MAGNESIUM OXIDE
     Route: 065
  6. SULFAMETHOXAZOLE\TRIMETHOPRIM [Concomitant]
     Active Substance: SULFAMETHOXAZOLE\TRIMETHOPRIM
     Route: 065
  7. ZOLPIDEM TARTRATE [Concomitant]
     Active Substance: ZOLPIDEM TARTRATE
     Route: 065
  8. ALPRAZOLAM [Concomitant]
     Active Substance: ALPRAZOLAM
     Route: 065
  9. CHLORPROMAZINE HYDROCHLORIDE [Concomitant]
     Active Substance: CHLORPROMAZINE HYDROCHLORIDE
     Route: 065
  10. LORMETAZEPAM [Concomitant]
     Active Substance: LORMETAZEPAM
     Route: 065

REACTIONS (1)
  - Hyperammonaemia [Recovered/Resolved]

NARRATIVE: CASE EVENT DATE: 20240623
